FAERS Safety Report 14503109 (Version 2)
Quarter: 2018Q1

REPORT INFORMATION
  Report Type: Spontaneous
  Country: US (occurrence: US)
  Receive Date: 20180208
  Receipt Date: 20180320
  Transmission Date: 20180509
  Serious: No
  Sender: FDA-Public Use
  Company Number: US-PFIZER INC-2018055070

PATIENT
  Age: 62 Year
  Sex: Female
  Weight: 74.84 kg

DRUGS (2)
  1. DESVENLAFAXINE SUCCINATE. [Suspect]
     Active Substance: DESVENLAFAXINE SUCCINATE
     Dosage: 50 MG, DAILY
     Dates: start: 20170421
  2. DESVENLAFAXINE SUCCINATE. [Suspect]
     Active Substance: DESVENLAFAXINE SUCCINATE
     Indication: DEPRESSION
     Dosage: 50 MG, DAILY
     Dates: start: 201704

REACTIONS (5)
  - Bedridden [Unknown]
  - Feeling abnormal [Unknown]
  - Depression [Unknown]
  - Crying [Unknown]
  - Drug ineffective [Unknown]
